FAERS Safety Report 9254355 (Version 1)
Quarter: 2013Q2

REPORT INFORMATION
  Report Type: Spontaneous
  Country: GR (occurrence: GR)
  Receive Date: 20130425
  Receipt Date: 20130425
  Transmission Date: 20140414
  Serious: Yes (Other)
  Sender: FDA-Public Use
  Company Number: PHHY2013GR039364

PATIENT
  Age: 47 Year
  Sex: Male
  Weight: 70 kg

DRUGS (1)
  1. GILENYA [Suspect]
     Indication: MULTIPLE SCLEROSIS
     Dosage: 0.5 MG, QD
     Route: 048
     Dates: start: 20120404, end: 20130212

REACTIONS (1)
  - Acute myocardial infarction [Recovered/Resolved with Sequelae]
